FAERS Safety Report 17062756 (Version 4)
Quarter: 2020Q1

REPORT INFORMATION
  Report Type: Report from Study
  Country: None (occurrence: ES)
  Receive Date: 20191122
  Receipt Date: 20200122
  Transmission Date: 20200409
  Serious: Yes (Other)
  Sender: FDA-Public Use
  Company Number: ES-ABBVIE-19K-144-3003138-00

PATIENT
  Sex: Female
  Weight: 80 kg

DRUGS (1)
  1. DUODOPA [Suspect]
     Active Substance: CARBIDOPA\LEVODOPA
     Indication: PARKINSON^S DISEASE
     Route: 050
     Dates: start: 20190522

REACTIONS (8)
  - Device dislocation [Recovered/Resolved]
  - Embedded device [Unknown]
  - Mobility decreased [Unknown]
  - Fatigue [Not Recovered/Not Resolved]
  - Bezoar [Recovered/Resolved]
  - Stoma site pain [Not Recovered/Not Resolved]
  - Device kink [Unknown]
  - Stoma site discomfort [Unknown]

NARRATIVE: CASE EVENT DATE: 2019
